FAERS Safety Report 4341303-9 (Version None)
Quarter: 2004Q1

REPORT INFORMATION
  Report Type: 
  Country: None (occurrence: None)
  Receive Date: 20040314
  Receipt Date: 20030915
  Transmission Date: 20041129
  Serious: Yes (Hospitalization)
  Sender: FDA-Public Use
  Company Number: 2003-BP-06844BP(0)

PATIENT
  Sex: 0

DRUGS (1)
  1. MOBIC [Suspect]
     Dosage: PO
     Route: 048

REACTIONS (3)
  - NEPHRITIS INTERSTITIAL [None]
  - OEDEMA [None]
  - RENAL FAILURE [None]
